FAERS Safety Report 6877119-9 (Version None)
Quarter: 2010Q3

REPORT INFORMATION
  Report Type: 
  Country: None (occurrence: None)
  Receive Date: 20100727
  Receipt Date: 20100727
  Transmission Date: 20110219
  Serious: Yes (Other)
  Sender: FDA-Public Use
  Company Number: None

PATIENT
  Age: 55 Year
  Sex: Female
  Weight: 97.5234 kg

DRUGS (2)
  1. CLARITHROMYCIN [Suspect]
     Indication: ACUTE SINUSITIS
     Dosage: 500 MG. 2 X A DAY PO
     Route: 048
     Dates: start: 20100719, end: 20100722
  2. CLARITIN-D 24 HOUR [Concomitant]

REACTIONS (10)
  - BLOOD PRESSURE INCREASED [None]
  - DEPRESSION [None]
  - DIARRHOEA [None]
  - DIZZINESS [None]
  - DRUG INEFFECTIVE [None]
  - DRY MOUTH [None]
  - DYSGEUSIA [None]
  - HEART RATE INCREASED [None]
  - INSOMNIA [None]
  - THIRST [None]
